FAERS Safety Report 16213130 (Version 2)
Quarter: 2019Q3

REPORT INFORMATION
  Report Type: Spontaneous
  Country: US (occurrence: US)
  Receive Date: 20190418
  Receipt Date: 20190701
  Transmission Date: 20191004
  Serious: Yes (Hospitalization, Other)
  Sender: FDA-Public Use
  Company Number: US-JNJFOC-20190419343

PATIENT
  Age: 48 Year
  Sex: Female

DRUGS (2)
  1. XARELTO [Suspect]
     Active Substance: RIVAROXABAN
     Indication: DEEP VEIN THROMBOSIS
     Dosage: 15/20 MG STARTER PACK
     Route: 048
     Dates: start: 20180802, end: 20180809
  2. XARELTO [Suspect]
     Active Substance: RIVAROXABAN
     Dosage: 15/20 MG TABLET STARTER PACK
     Route: 048
     Dates: start: 20180811, end: 20180822

REACTIONS (1)
  - Haemorrhagic stroke [Unknown]

NARRATIVE: CASE EVENT DATE: 20180822
